FAERS Safety Report 9501372 (Version 1)
Quarter: 2013Q3

REPORT INFORMATION
  Report Type: Spontaneous
  Country: US (occurrence: US)
  Receive Date: 20130905
  Receipt Date: 20130905
  Transmission Date: 20140515
  Serious: No
  Sender: FDA-Public Use
  Company Number: US-PFIZER INC-2013254548

PATIENT
  Age: 66 Year
  Sex: Female

DRUGS (4)
  1. MOTRIN IB [Suspect]
     Indication: TENDONITIS
     Dosage: UNK
     Dates: start: 20130219
  2. MOTRIN IB [Suspect]
     Indication: PAIN IN EXTREMITY
  3. XANAX [Concomitant]
     Indication: ANXIETY
     Dosage: 2.5 MG, THREE TIMES A DAY
  4. COZAAR [Concomitant]
     Indication: HYPERTENSION
     Dosage: 100 MG, ONCE A DAY

REACTIONS (1)
  - Drug ineffective [Unknown]
